FAERS Safety Report 13702766 (Version 2)
Quarter: 2017Q3

REPORT INFORMATION
  Report Type: Spontaneous
  Country: FR (occurrence: FR)
  Receive Date: 20170629
  Receipt Date: 20170801
  Transmission Date: 20171127
  Serious: Yes (Other)
  Sender: FDA-Public Use
  Company Number: FR-BAYER-2017-122581

PATIENT
  Age: 35 Year
  Sex: Female

DRUGS (1)
  1. MIRENA [Suspect]
     Active Substance: LEVONORGESTREL
     Indication: CONTRACEPTION
     Dosage: 20 MCG/24HR, CONT
     Route: 015
     Dates: start: 20080611, end: 20090130

REACTIONS (8)
  - Tachycardia [Recovered/Resolved]
  - Depression [Not Recovered/Not Resolved]
  - Alopecia [Recovering/Resolving]
  - Paraesthesia [Recovered/Resolved with Sequelae]
  - Headache [Recovered/Resolved]
  - Back pain [Recovered/Resolved with Sequelae]
  - Vertigo [Recovered/Resolved]
  - Gastritis [Not Recovered/Not Resolved]

NARRATIVE: CASE EVENT DATE: 200807
